FAERS Safety Report 4266191-0 (Version None)
Quarter: 2004Q1

REPORT INFORMATION
  Report Type: 
  Country: None (occurrence: None)
  Receive Date: 20040106
  Receipt Date: 20031230
  Transmission Date: 20041129
  Serious: Yes (Hospitalization)
  Sender: FDA-Public Use
  Company Number: FRWYE486330DEC03

PATIENT
  Age: 76 Year
  Sex: Male

DRUGS (5)
  1. BISOPROLOL FUMARATE [Suspect]
     Dosage: 10 MG 1X PER 1 DAY, ORAL
     Route: 048
     Dates: start: 20000101, end: 20031102
  2. CIPRALAN [Suspect]
     Dosage: 1 TABLET 2X PER 1 DAY; ORAL
     Route: 048
     Dates: start: 19930101, end: 20031102
  3. LOXEN (NICARDIPINE HYDROCHLORIED,  , 0) [Suspect]
     Dosage: 1 TABLET 2X PER 1 DAY; ORAL
     Route: 048
     Dates: start: 20000101, end: 20031102
  4. POTASSIUM CHLORIDE [Concomitant]
  5. LASIX [Concomitant]

REACTIONS (3)
  - ELECTROCARDIOGRAM QT PROLONGED [None]
  - HYPOKALAEMIA [None]
  - ISCHAEMIC STROKE [None]
